FAERS Safety Report 16021692 (Version 1)
Quarter: 2019Q2

REPORT INFORMATION
  Report Type: Spontaneous
  Country: US (occurrence: US)
  Receive Date: 20190301
  Receipt Date: 20190301
  Transmission Date: 20190711
  Serious: Yes (Other)
  Sender: FDA-Public Use
  Company Number: None

PATIENT
  Age: 47 Year
  Sex: Female
  Weight: 72.9 kg

DRUGS (4)
  1. LEFLUNOMIDE. [Concomitant]
     Active Substance: LEFLUNOMIDE
     Dates: start: 20181018
  2. OXYCODONE [Concomitant]
     Active Substance: OXYCODONE
     Dates: start: 20150528
  3. TALTZ [Suspect]
     Active Substance: IXEKIZUMAB
     Indication: PSORIATIC ARTHROPATHY
     Dosage: ?          OTHER FREQUENCY:ONCE-LOADING DOSE;?
     Route: 058
     Dates: start: 20190216, end: 20190216
  4. CLOBETASOL [Concomitant]
     Active Substance: CLOBETASOL
     Dates: start: 20150528

REACTIONS (2)
  - Urticaria [None]
  - Injection site urticaria [None]

NARRATIVE: CASE EVENT DATE: 20190216
